FAERS Safety Report 6497697-1 (Version None)
Quarter: 2009Q4

REPORT INFORMATION
  Report Type: 
  Country: None (occurrence: None)
  Receive Date: 20091215
  Receipt Date: 20091208
  Transmission Date: 20100525
  Serious: No
  Sender: FDA-Public Use
  Company Number: US-B.I. PHARMACEUTICALS,INC./RIDGEFIELD-2009-BP-14199BP

PATIENT
  Age: 43 Year
  Sex: Male

DRUGS (7)
  1. FLOMAX [Suspect]
     Indication: RESIDUAL URINE
     Dosage: 0.4 MG
     Route: 048
     Dates: start: 20091003, end: 20091206
  2. OXYCONTIN [Concomitant]
     Indication: BACK PAIN
  3. HYDROMORPHONE HCL [Concomitant]
     Indication: BACK PAIN
  4. BUSPAR [Concomitant]
     Indication: BACK PAIN
  5. TIZANIDINE HCL [Concomitant]
     Indication: MUSCLE RELAXANT THERAPY
  6. TOPROL-XL [Concomitant]
     Indication: HYPERTENSION
  7. GABAPENTIN [Concomitant]
     Indication: NEURALGIA

REACTIONS (3)
  - BACK PAIN [None]
  - DYSURIA [None]
  - PROSTATIC DISORDER [None]
